FAERS Safety Report 10717722 (Version 1)
Quarter: 2015Q1

REPORT INFORMATION
  Report Type: Spontaneous
  Country: US (occurrence: US)
  Receive Date: 20150116
  Receipt Date: 20150116
  Transmission Date: 20150721
  Serious: Yes (Other)
  Sender: FDA-Public Use
  Company Number: US-TEVA-533821USA

PATIENT
  Age: 21 Year
  Sex: Female

DRUGS (1)
  1. APRI [Suspect]
     Active Substance: DESOGESTREL\ETHINYL ESTRADIOL
     Indication: ACNE
     Dosage: 0.15MG/0.03MG

REACTIONS (4)
  - Vision blurred [Unknown]
  - Intracranial pressure increased [Unknown]
  - Off label use [Unknown]
  - Blindness [Unknown]
